FAERS Safety Report 23193667 (Version 1)
Quarter: 2023Q4

REPORT INFORMATION
  Report Type: Spontaneous
  Country: BE (occurrence: BE)
  Receive Date: 20231116
  Receipt Date: 20231116
  Transmission Date: 20240110
  Serious: Yes (Other)
  Sender: FDA-Public Use
  Company Number: BE-NOVOPROD-1140203

PATIENT
  Sex: Female

DRUGS (1)
  1. OZEMPIC [Suspect]
     Active Substance: SEMAGLUTIDE
     Indication: Thyroid disorder
     Dosage: 2 G, QW

REACTIONS (2)
  - Leukaemia [Unknown]
  - Off label use [Not Recovered/Not Resolved]
